FAERS Safety Report 9870257 (Version 1)
Quarter: 2014Q1

REPORT INFORMATION
  Report Type: Spontaneous
  Country: US (occurrence: None)
  Receive Date: 20140131
  Receipt Date: 20140131
  Transmission Date: 20141002
  Serious: Yes (Death)
  Sender: FDA-Public Use
  Company Number: 2014AP000707

PATIENT
  Age: 51 Year
  Sex: Female

DRUGS (7)
  1. AMLODIPINE BESYLATE TABLETS [Suspect]
     Route: 048
  2. CITALOPRAM [Suspect]
     Route: 048
  3. LAMOTRIGINE TABLETS [Suspect]
     Route: 048
  4. RISPERIDONE [Suspect]
     Route: 048
  5. NALTREXONE [Suspect]
     Route: 048
  6. LEVOTHYROXINE [Suspect]
     Route: 048
  7. ESOMEPRAZOLE [Suspect]
     Route: 048

REACTIONS (2)
  - Completed suicide [None]
  - Exposure via ingestion [None]
